FAERS Safety Report 24981950 (Version 1)
Quarter: 2025Q1

REPORT INFORMATION
  Report Type: Spontaneous
  Country: US (occurrence: US)
  Receive Date: 20250218
  Receipt Date: 20250218
  Transmission Date: 20250409
  Serious: No
  Sender: Haleon PLC
  Company Number: US-HALEON-2228377

PATIENT
  Sex: Female

DRUGS (1)
  1. NICOTINE TRANSDERMAL PATCHES (MENTHOL\NICOTINE) [Suspect]
     Active Substance: MENTHOL\NICOTINE
     Indication: Product used for unknown indication

REACTIONS (2)
  - Application site pain [Unknown]
  - Application site pruritus [Unknown]
